FAERS Safety Report 15847584 (Version 5)
Quarter: 2020Q3

REPORT INFORMATION
  Report Type: Other
  Country: DE (occurrence: DE)
  Receive Date: 20190121
  Receipt Date: 20200728
  Transmission Date: 20201102
  Serious: Yes (Other)
  Sender: FDA-Public Use
  Company Number: DE-ROCHE-2147123

PATIENT
  Age: 38 Year
  Sex: Female

DRUGS (5)
  1. OCREVUS [Suspect]
     Active Substance: OCRELIZUMAB
     Indication: RELAPSING-REMITTING MULTIPLE SCLEROSIS
     Route: 042
     Dates: start: 20180613
  2. OCREVUS [Suspect]
     Active Substance: OCRELIZUMAB
     Route: 042
     Dates: start: 20181214
  3. OCREVUS [Suspect]
     Active Substance: OCRELIZUMAB
     Route: 042
     Dates: start: 20190619
  4. OCREVUS [Suspect]
     Active Substance: OCRELIZUMAB
     Dosage: 3RD MAINTENANCE DOSE
     Route: 042
     Dates: start: 20191209
  5. DEKRISTOL [Concomitant]
     Active Substance: CHOLECALCIFEROL

REACTIONS (8)
  - Dislocation of vertebra [Recovering/Resolving]
  - Fatigue [Recovered/Resolved]
  - Nasopharyngitis [Recovered/Resolved]
  - Multiple sclerosis relapse [Recovered/Resolved]
  - Menstruation irregular [Recovered/Resolved]
  - Costochondritis [Recovered/Resolved]
  - Cough [Recovered/Resolved]
  - Osteitis [Recovered/Resolved]

NARRATIVE: CASE EVENT DATE: 20180613
